FAERS Safety Report 18249969 (Version 1)
Quarter: 2020Q3

REPORT INFORMATION
  Report Type: Spontaneous
  Country: US (occurrence: US)
  Receive Date: 20200909
  Receipt Date: 20200909
  Transmission Date: 20201103
  Serious: Yes (Other)
  Sender: FDA-Public Use
  Company Number: US-DSJP-DSU-2020-125934

PATIENT
  Sex: Female
  Weight: 68.93 kg

DRUGS (7)
  1. OLMESARTAN AG [Suspect]
     Active Substance: OLMESARTAN MEDOXOMIL
     Indication: HYPERTENSION
     Dosage: 1/2 TABLET IN THE AM AND 1/2 TABLET IN THE PM
     Route: 048
     Dates: start: 202008, end: 202008
  2. HUMALOG [Concomitant]
     Active Substance: INSULIN LISPRO
     Indication: DIABETES MELLITUS
     Dosage: SLIDING SCALE
     Route: 065
  3. BENICAR [Suspect]
     Active Substance: OLMESARTAN MEDOXOMIL
     Dosage: 1/2 TABLET IN THE AM AND 1/2 TABLET IN THE PM
     Route: 048
     Dates: start: 2011, end: 202008
  4. BENICAR [Suspect]
     Active Substance: OLMESARTAN MEDOXOMIL
     Indication: HYPERTENSION
     Dosage: 1/2 TABLET IN THE AM AND 1/2 TABLET IN THE PM
     Route: 048
     Dates: start: 2007, end: 2008
  5. SYNTHROID [Concomitant]
     Active Substance: LEVOTHYROXINE SODIUM
     Indication: THYROID DISORDER
     Dosage: UNK
     Route: 048
  6. LANTUS [Concomitant]
     Active Substance: INSULIN GLARGINE
     Indication: DIABETES MELLITUS
     Dosage: 20 UNIT SUB Q
     Route: 058
  7. BENICAR [Suspect]
     Active Substance: OLMESARTAN MEDOXOMIL
     Dosage: 1/2 TABLET IN THE AM AND 1/2 TABLET IN THE PM
     Route: 048
     Dates: start: 2008, end: 2011

REACTIONS (9)
  - Lymphoma [Not Recovered/Not Resolved]
  - Migraine [Unknown]
  - Herpes zoster [Unknown]
  - Urticaria [Unknown]
  - Swelling [Unknown]
  - Pain [Unknown]
  - Off label use [Recovered/Resolved]
  - Pharyngeal swelling [Unknown]
  - Atrial fibrillation [Not Recovered/Not Resolved]

NARRATIVE: CASE EVENT DATE: 2007
